FAERS Safety Report 20105204 (Version 2)
Quarter: 2022Q1

REPORT INFORMATION
  Report Type: Report from Study
  Country: US (occurrence: US)
  Receive Date: 20211124
  Receipt Date: 20220114
  Transmission Date: 20220423
  Serious: Yes (Hospitalization, Other)
  Sender: FDA-Public Use
  Company Number: US-BAUSCH-BL-2021-038461

PATIENT
  Age: 40 Year
  Sex: Female
  Weight: 76.272 kg

DRUGS (1)
  1. XIFAXAN [Suspect]
     Active Substance: RIFAXIMIN
     Indication: Hepatic encephalopathy
     Dosage: TWO AND HALF YEARS AGO
     Route: 048
     Dates: start: 2019

REACTIONS (5)
  - Ammonia increased [Unknown]
  - Hospitalisation [Unknown]
  - Pneumonia [Unknown]
  - Blood glucose decreased [Unknown]
  - Road traffic accident [Unknown]

NARRATIVE: CASE EVENT DATE: 20211114
